FAERS Safety Report 16015990 (Version 1)
Quarter: 2019Q1

REPORT INFORMATION
  Report Type: Spontaneous
  Country: GB (occurrence: GB)
  Receive Date: 20190228
  Receipt Date: 20190228
  Transmission Date: 20190418
  Serious: Yes (Other)
  Sender: FDA-Public Use
  Company Number: GB-ACCORD-109616

PATIENT
  Age: 51 Year
  Sex: Female
  Weight: 65.77 kg

DRUGS (1)
  1. AMITRIPTYLINE [Suspect]
     Active Substance: AMITRIPTYLINE
     Indication: NUCHAL RIGIDITY
     Route: 048
     Dates: start: 20180813, end: 20180813

REACTIONS (6)
  - Nausea [Recovering/Resolving]
  - Hyperhidrosis [Recovered/Resolved]
  - Malaise [Recovering/Resolving]
  - Off label use [Unknown]
  - Palpitations [Recovering/Resolving]
  - Abdominal pain upper [Recovering/Resolving]

NARRATIVE: CASE EVENT DATE: 20180813
